FAERS Safety Report 22537550 (Version 1)
Quarter: 2023Q2

REPORT INFORMATION
  Report Type: Spontaneous
  Country: US (occurrence: US)
  Receive Date: 20230608
  Receipt Date: 20230608
  Transmission Date: 20230721
  Serious: No
  Sender: FDA-Public Use
  Company Number: US-SA-SAC20230605000907

PATIENT

DRUGS (1)
  1. LARONIDASE [Suspect]
     Active Substance: LARONIDASE
     Indication: Mucopolysaccharidosis I
     Dosage: 8.7 UNK, QW
     Route: 042
     Dates: start: 20180718

REACTIONS (8)
  - Ear infection [Unknown]
  - Ear pain [Unknown]
  - Musculoskeletal stiffness [Unknown]
  - Limb discomfort [Unknown]
  - Back disorder [Unknown]
  - Enzyme level abnormal [Unknown]
  - Speech disorder [Unknown]
  - Occupational therapy [Unknown]
